FAERS Safety Report 18151603 (Version 2)
Quarter: 2020Q4

REPORT INFORMATION
  Report Type: Spontaneous
  Country: US (occurrence: US)
  Receive Date: 20200814
  Receipt Date: 20201106
  Transmission Date: 20210113
  Serious: No
  Sender: FDA-Public Use
  Company Number: US-ASTRAZENECA-2020SE91360

PATIENT
  Sex: Female

DRUGS (2)
  1. FASENRA [Suspect]
     Active Substance: BENRALIZUMAB
     Dosage: THEN EVERY 8 WEEKS THEREAFTER COMPLETING THE 3 LOADING DOSES
     Route: 058
  2. FASENRA [Suspect]
     Active Substance: BENRALIZUMAB
     Dosage: EVERY 4 WEEKS FOR THE FIRST 3 DOSES
     Route: 058

REACTIONS (1)
  - Wheezing [Unknown]
